FAERS Safety Report 5819001-1 (Version None)
Quarter: 2008Q3

REPORT INFORMATION
  Report Type: 
  Country: None (occurrence: None)
  Receive Date: 20080721
  Receipt Date: 20080721
  Transmission Date: 20090109
  Serious: Yes (Hospitalization)
  Sender: FDA-Public Use
  Company Number: None

PATIENT
  Age: 48 Year
  Sex: Female
  Weight: 86 kg

DRUGS (3)
  1. LEVOFLOXACIN [Suspect]
     Indication: ANTIBIOTIC THERAPY
     Dosage: 750 MG ADJUSTED FOR CRCL IV
     Route: 042
     Dates: start: 20080711, end: 20080718
  2. LEVOFLOXACIN [Suspect]
     Indication: EVIDENCE BASED TREATMENT
     Dosage: 750 MG ADJUSTED FOR CRCL IV
     Route: 042
     Dates: start: 20080711, end: 20080718
  3. LEVOFLOXACIN [Suspect]
     Indication: PNEUMONIA
     Dosage: 750 MG ADJUSTED FOR CRCL IV
     Route: 042
     Dates: start: 20080711, end: 20080718

REACTIONS (2)
  - INCORRECT DOSE ADMINISTERED [None]
  - PARTIAL SEIZURES [None]
